FAERS Safety Report 23050364 (Version 1)
Quarter: 2023Q4

REPORT INFORMATION
  Report Type: Spontaneous
  Country: US (occurrence: US)
  Receive Date: 20231010
  Receipt Date: 20231010
  Transmission Date: 20240109
  Serious: No
  Sender: FDA-Public Use
  Company Number: US-FreseniusKabi-FK202315707

PATIENT

DRUGS (8)
  1. DILAUDID [Suspect]
     Active Substance: HYDROMORPHONE HYDROCHLORIDE
     Indication: Cervical radiculopathy
     Dosage: 4.28 MG QD
     Route: 037
  2. DILAUDID [Suspect]
     Active Substance: HYDROMORPHONE HYDROCHLORIDE
     Indication: Pain
  3. BUPIVACAINE [Suspect]
     Active Substance: BUPIVACAINE
     Indication: Pain
     Dosage: 2.882 MG QD
     Route: 037
  4. BUPIVACAINE [Suspect]
     Active Substance: BUPIVACAINE
     Indication: Cervical radiculopathy
  5. FENTANYL [Suspect]
     Active Substance: FENTANYL
     Indication: Pain
     Dosage: 799 MCG QD
     Route: 037
  6. FENTANYL [Suspect]
     Active Substance: FENTANYL
     Indication: Cervical radiculopathy
  7. PRIALT [Suspect]
     Active Substance: ZICONOTIDE ACETATE
     Indication: Cervical radiculopathy
     Dosage: 0.142 MCG QD
     Route: 037
  8. PRIALT [Suspect]
     Active Substance: ZICONOTIDE ACETATE
     Indication: Pain

REACTIONS (3)
  - Pain [Unknown]
  - Condition aggravated [Unknown]
  - Off label use [Unknown]
